FAERS Safety Report 7610196-6 (Version None)
Quarter: 2011Q3

REPORT INFORMATION
  Report Type: 
  Country: None (occurrence: None)
  Receive Date: 20110715
  Receipt Date: 20110706
  Transmission Date: 20111222
  Serious: No
  Sender: FDA-Public Use
  Company Number: US-BIOGENIDEC-2011BI025371

PATIENT
  Sex: Female

DRUGS (1)
  1. AVONEX [Suspect]
     Indication: MULTIPLE SCLEROSIS
     Route: 030
     Dates: start: 20110404

REACTIONS (5)
  - SENSORY DISTURBANCE [None]
  - DIZZINESS [None]
  - HYPERTENSION [None]
  - PARAESTHESIA [None]
  - INFLUENZA LIKE ILLNESS [None]
